FAERS Safety Report 25980708 (Version 2)
Quarter: 2025Q4

REPORT INFORMATION
  Report Type: Spontaneous
  Country: US (occurrence: US)
  Receive Date: 20251030
  Receipt Date: 20251218
  Transmission Date: 20260118
  Serious: Yes (Other)
  Sender: BAYER HEALTHCARE LLC
  Company Number: US-BAYER-2025A141854

PATIENT
  Age: 74 Year
  Sex: Male

DRUGS (2)
  1. MIRALAX [Suspect]
     Active Substance: POLYETHYLENE GLYCOL 3350
     Indication: Colonoscopy
     Dosage: 2 DF
  2. MIRALAX [Suspect]
     Active Substance: POLYETHYLENE GLYCOL 3350
     Indication: Colonoscopy
     Dosage: 1 DF
     Route: 048

REACTIONS (8)
  - Choking [Unknown]
  - Retching [Recovered/Resolved with Sequelae]
  - Diarrhoea [Unknown]
  - Product contamination physical [Recovered/Resolved with Sequelae]
  - Product prescribing issue [Unknown]
  - Extra dose administered [None]
  - Product use in unapproved indication [None]
  - Product prescribing issue [None]

NARRATIVE: CASE EVENT DATE: 20251026
